FAERS Safety Report 7865194-4 (Version None)
Quarter: 2011Q4

REPORT INFORMATION
  Report Type: 
  Country: None (occurrence: None)
  Receive Date: 20111028
  Receipt Date: 20101028
  Transmission Date: 20120403
  Serious: No
  Sender: FDA-Public Use
  Company Number: US-GLAXOSMITHKLINE-A0889409A

PATIENT
  Age: 57 Year
  Sex: Female

DRUGS (8)
  1. DUONEB [Concomitant]
  2. PROVENTIL [Concomitant]
  3. LANTUS [Concomitant]
  4. LASIX [Concomitant]
  5. TRAMADOL HCL [Concomitant]
  6. DIOVAN [Concomitant]
  7. METAGLIP [Concomitant]
  8. ADVAIR DISKUS 100/50 [Suspect]
     Indication: PRODUCT USED FOR UNKNOWN INDICATION
     Dosage: 1PUFF TWICE PER DAY
     Route: 055

REACTIONS (2)
  - PRODUCT QUALITY ISSUE [None]
  - ADVERSE EVENT [None]
